FAERS Safety Report 8006747-2 (Version None)
Quarter: 2011Q4

REPORT INFORMATION
  Report Type: 
  Country: None (occurrence: None)
  Receive Date: 20111227
  Receipt Date: 20111220
  Transmission Date: 20120403
  Serious: Yes (Hospitalization)
  Sender: FDA-Public Use
  Company Number: BE-JNJFOC-20111210665

PATIENT
  Sex: Male
  Weight: 53.71 kg

DRUGS (6)
  1. VINCRISTINE [Suspect]
     Indication: B-CELL LYMPHOMA
     Route: 042
     Dates: start: 20111004
  2. CYCLOPHOSPHAMIDE [Suspect]
     Indication: B-CELL LYMPHOMA
     Route: 042
     Dates: start: 20111004
  3. RITUXIMAB [Suspect]
     Indication: B-CELL LYMPHOMA
     Route: 042
     Dates: start: 20111004
  4. NEUPOGEN [Suspect]
     Indication: B-CELL LYMPHOMA
     Route: 058
     Dates: start: 20111005
  5. PREDNISONE TAB [Suspect]
     Indication: B-CELL LYMPHOMA
     Route: 048
     Dates: start: 20111004
  6. DOXORUBICIN HCL [Suspect]
     Indication: B-CELL LYMPHOMA
     Route: 042
     Dates: start: 20111004

REACTIONS (1)
  - SMALL INTESTINAL OBSTRUCTION [None]
